FAERS Safety Report 4941194-9 (Version None)
Quarter: 2006Q1

REPORT INFORMATION
  Report Type: 
  Country: None (occurrence: None)
  Receive Date: 20060308
  Receipt Date: 20060222
  Transmission Date: 20060701
  Serious: Yes (Life-Threatening)
  Sender: FDA-Public Use
  Company Number: 2006026015

PATIENT
  Age: 92 Year
  Sex: Female

DRUGS (24)
  1. UNASYN [Suspect]
     Indication: PNEUMONIA
     Dosage: 3 GRAM (1.5 GRAM, 2 IN 1 D), ORAL
     Route: 048
     Dates: start: 20051113, end: 20051114
  2. ZITHROMAX [Suspect]
     Indication: PNEUMONIA
     Dosage: 500 MG (500 MG, 1 IN 1 D), ORAL
     Route: 048
     Dates: start: 20051111, end: 20051113
  3. ARICEPT [Suspect]
     Indication: DEMENTIA ALZHEIMER'S TYPE
     Dosage: SEE IMAGE
     Route: 048
     Dates: start: 20051014, end: 20051020
  4. ARICEPT [Suspect]
     Indication: DEMENTIA ALZHEIMER'S TYPE
     Dosage: SEE IMAGE
     Route: 048
     Dates: start: 20051021, end: 20051113
  5. SERMION (NICERGOLINE) [Concomitant]
  6. MUCOSTA (REBAMIPIDE) [Concomitant]
  7. NORVASC [Concomitant]
  8. PANTOSIN (PANTETHINE) [Concomitant]
  9. MAGNESIUM OXIDE (MAGNESIUM OXIDE) [Concomitant]
  10. NEUROTROPIN (ORGAN LYSATE, STANDARDIZED) [Concomitant]
  11. ALFACALCIDOL (ALFACALCIDOL) [Concomitant]
  12. SOLDOL E (SENNOSIDE A+B) [Concomitant]
  13. DOGMATYL (SULPIRIDE) [Concomitant]
  14. GASCON (DIMETICONE) [Concomitant]
  15. LAC B (LACTOBACILLUS BIFIDUS, LYOPHILIZED) [Concomitant]
  16. GANATON (ITOPRIDE HYDROCHLORIDE) [Concomitant]
  17. COLONEL (POLYCARBOPHIL CALCIUM) [Concomitant]
  18. ASPARA K (ASPARTATE POTASSIUM) [Concomitant]
  19. MUCODYNE (CARBOCISTEINE) [Concomitant]
  20. FERROMIA (FERROUS CITRATE) [Concomitant]
  21. VITAMEDIN CAPSULE (BENFOTIAMINE, CYANOCOBALAMIN, PYRIDOXINE HYDROCHLOR [Concomitant]
  22. ASCORBIC ACID [Concomitant]
  23. AMINOPHYLLIN [Concomitant]
  24. BISOLVON (BROMHEXINE HYDROCHLORIDE) [Concomitant]

REACTIONS (6)
  - ASPIRATION [None]
  - BRONCHITIS ACUTE [None]
  - INFLAMMATION [None]
  - PNEUMONIA [None]
  - RENAL FAILURE ACUTE [None]
  - SOMNOLENCE [None]
